FAERS Safety Report 9219271 (Version 1)
Quarter: 2013Q2

REPORT INFORMATION
  Report Type: Not Available
  Country: ES (occurrence: ES)
  Receive Date: 20130409
  Receipt Date: 20130409
  Transmission Date: 20140414
  Serious: Yes (Death, Hospitalization)
  Sender: FDA-Public Use
  Company Number: ES-ASTELLAS-2013EU003170

PATIENT
  Age: 83 Year
  Sex: Female

DRUGS (5)
  1. VESICARE [Suspect]
     Indication: URINARY INCONTINENCE
     Dosage: 5 MG, UNKNOWN/D
     Route: 048
     Dates: start: 20120808, end: 20121101
  2. ENANTYUM [Suspect]
     Indication: ARTHRALGIA
     Dosage: 25 MG, TID
     Route: 048
     Dates: start: 20120817, end: 20121101
  3. OMEPRAZOLE [Concomitant]
     Indication: PROPHYLAXIS
     Dosage: 20 MG, UNKNOWN/D
     Route: 048
     Dates: start: 20120817, end: 20121101
  4. ENALAPRIL [Concomitant]
     Indication: HYPERTENSION
     Dosage: UNK
     Route: 048
     Dates: start: 2010, end: 20121101
  5. INDAPAMIDE [Concomitant]
     Indication: HYPERTENSION
     Dosage: 2.5 MG, UNKNOWN/D
     Route: 048
     Dates: start: 2010, end: 20121101

REACTIONS (1)
  - Megacolon [Fatal]
